FAERS Safety Report 8117759-2 (Version None)
Quarter: 2012Q1

REPORT INFORMATION
  Report Type: 
  Country: None (occurrence: None)
  Receive Date: 20120119
  Receipt Date: 20120112
  Transmission Date: 20120608
  Serious: Yes (Death)
  Sender: FDA-Public Use
  Company Number: M2012-003

PATIENT
  Age: 77 Year
  Sex: Male

DRUGS (1)
  1. ALLERGENIC EXTRACT [Suspect]
     Indication: MULTIPLE ALLERGIES

REACTIONS (1)
  - DEATH [None]
